APPROVED DRUG PRODUCT: AMYVID
Active Ingredient: FLORBETAPIR F-18
Strength: 10ML (13.5-51mCi/ML)
Dosage Form/Route: SOLUTION;INTRAVENOUS
Application: N202008 | Product #001
Applicant: AVID RADIOPHARMACEUTICALS INC
Approved: Apr 6, 2012 | RLD: Yes | RS: No | Type: DISCN

PATENTS:
Patent 7687052 | Expires: Apr 30, 2027
Patent 8506929 | Expires: Apr 30, 2027